FAERS Safety Report 7108729-1 (Version None)
Quarter: 2010Q4

REPORT INFORMATION
  Report Type: 
  Country: None (occurrence: None)
  Receive Date: 20101117
  Receipt Date: 20101108
  Transmission Date: 20110411
  Serious: Yes (Other)
  Sender: FDA-Public Use
  Company Number: JP-MERCK-1011USA00073

PATIENT
  Age: 75 Year
  Sex: Female

DRUGS (6)
  1. PEPCID RPD [Suspect]
     Route: 048
     Dates: start: 20080301
  2. LIPITOR [Suspect]
     Route: 048
  3. OLMETEC [Concomitant]
     Route: 065
  4. BASEN [Concomitant]
     Route: 065
  5. 8-HOUR BAYER [Concomitant]
     Route: 065
  6. ATELEC [Concomitant]
     Route: 065

REACTIONS (1)
  - ALTERED STATE OF CONSCIOUSNESS [None]
